FAERS Safety Report 23791046 (Version 1)
Quarter: 2024Q2

REPORT INFORMATION
  Report Type: Spontaneous
  Country: US (occurrence: US)
  Receive Date: 20240427
  Receipt Date: 20240427
  Transmission Date: 20240716
  Serious: No
  Sender: FDA-Public Use
  Company Number: US-Harrow Eye-2154794

PATIENT
  Sex: Female

DRUGS (1)
  1. FLAREX [Suspect]
     Active Substance: FLUOROMETHOLONE ACETATE
     Indication: Eye infection
     Route: 047

REACTIONS (2)
  - Accidental overdose [Unknown]
  - Off label use [Unknown]
